FAERS Safety Report 24179495 (Version 2)
Quarter: 2024Q3

REPORT INFORMATION
  Report Type: Spontaneous
  Country: ZA (occurrence: ZA)
  Receive Date: 20240806
  Receipt Date: 20240814
  Transmission Date: 20241017
  Serious: Yes (Other)
  Sender: PFIZER
  Company Number: ZA-PFIZER INC-PV202400100350

PATIENT
  Age: 61 Year
  Sex: Male
  Weight: 85 kg

DRUGS (1)
  1. XELJANZ [Suspect]
     Active Substance: TOFACITINIB CITRATE
     Indication: Colitis ulcerative
     Dosage: 5 MG, 2X/DAY (REPEAT THE ABOVE FOR 6 MONTHS AS CHRONIC MEDICATION)
     Route: 048
     Dates: start: 202402

REACTIONS (7)
  - Renal impairment [Unknown]
  - Blood creatinine increased [Unknown]
  - Blood albumin increased [Unknown]
  - Blood alkaline phosphatase decreased [Unknown]
  - Glomerular filtration rate decreased [Unknown]
  - Condition aggravated [Unknown]
  - Faecal calprotectin increased [Recovered/Resolved]

NARRATIVE: CASE EVENT DATE: 20240311
